FAERS Safety Report 24132657 (Version 1)
Quarter: 2024Q3

REPORT INFORMATION
  Report Type: Spontaneous
  Country: US (occurrence: US)
  Receive Date: 20240724
  Receipt Date: 20240724
  Transmission Date: 20241016
  Serious: Yes (Hospitalization, Other)
  Sender: The J.Molner Company
  Company Number: US-THE J. MOLNER COMPANY-202407000012

PATIENT

DRUGS (4)
  1. CIPROFLOXACIN [Suspect]
     Active Substance: CIPROFLOXACIN
     Indication: Urinary tract infection
     Dosage: 500 MILLIGRAM, FOR 6 DAYS
     Route: 065
  2. DOCUSATE POTASSIUM WITH CASANTHRANOL [Concomitant]
  3. LORAZEPAM [Concomitant]
     Active Substance: LORAZEPAM
  4. ACETAMINOPHEN [Concomitant]
     Active Substance: ACETAMINOPHEN

REACTIONS (2)
  - Hepatitis cholestatic [Recovered/Resolved]
  - Jaundice [Recovered/Resolved]
